FAERS Safety Report 18056440 (Version 8)
Quarter: 2022Q1

REPORT INFORMATION
  Report Type: Report from Study
  Country: GB (occurrence: GB)
  Receive Date: 20200722
  Receipt Date: 20220111
  Transmission Date: 20220423
  Serious: Yes (Other)
  Sender: FDA-Public Use
  Company Number: NVSC2020GB204869

PATIENT
  Sex: Female

DRUGS (2)
  1. OMNITROPE [Suspect]
     Active Substance: SOMATROPIN
     Indication: Growth hormone deficiency
     Dosage: 0.5 MG, QD
     Route: 058
     Dates: start: 20200715
  2. OMNITROPE [Suspect]
     Active Substance: SOMATROPIN
     Dosage: 0.6 MG, QD
     Route: 058

REACTIONS (16)
  - Blindness unilateral [Unknown]
  - Epilepsy [Unknown]
  - Brain injury [Unknown]
  - Dyskinesia [Unknown]
  - Hyperplasia [Unknown]
  - Hair growth abnormal [Unknown]
  - Memory impairment [Unknown]
  - Thirst [Unknown]
  - Increased appetite [Unknown]
  - Akathisia [Unknown]
  - Anxiety [Unknown]
  - Fear [Unknown]
  - Somnolence [Unknown]
  - Injection site haemorrhage [Unknown]
  - Cerebral disorder [Unknown]
  - Product dose omission issue [Unknown]
